FAERS Safety Report 16889620 (Version 1)
Quarter: 2019Q4

REPORT INFORMATION
  Report Type: Spontaneous
  Country: CN (occurrence: CN)
  Receive Date: 20191007
  Receipt Date: 20191007
  Transmission Date: 20200122
  Serious: Yes (Hospitalization)
  Sender: FDA-Public Use
  Company Number: CN-PFIZER INC-2019426319

PATIENT
  Age: 44 Year
  Sex: Female
  Weight: 48 kg

DRUGS (2)
  1. CELEBREX [Suspect]
     Active Substance: CELECOXIB
     Indication: TENDON INJURY
  2. CELEBREX [Suspect]
     Active Substance: CELECOXIB
     Indication: MUSCLE INJURY
     Dosage: 0.200 G, 1X/DAY
     Route: 048
     Dates: start: 20190610, end: 20190611

REACTIONS (3)
  - Papule [Recovering/Resolving]
  - Erythema [Recovering/Resolving]
  - Pruritus [Recovering/Resolving]

NARRATIVE: CASE EVENT DATE: 20190612
